FAERS Safety Report 16559999 (Version 1)
Quarter: 2019Q3

REPORT INFORMATION
  Report Type: Spontaneous
  Country: US (occurrence: US)
  Receive Date: 20190711
  Receipt Date: 20190711
  Transmission Date: 20191004
  Serious: Yes (Other)
  Sender: FDA-Public Use
  Company Number: US-AGG-03-2019-1380

PATIENT
  Age: 68 Year
  Sex: Female

DRUGS (11)
  1. AGGRASTAT [Suspect]
     Active Substance: TIROFIBAN HYDROCHLORIDE
     Indication: OFF LABEL USE
     Dosage: CONTINUOUS INFUSION FROM 17-MAR TO 21-MAR 02:00
     Route: 041
     Dates: start: 20190317, end: 20190321
  2. CANGRELOR [Concomitant]
     Active Substance: CANGRELOR
     Route: 042
  3. CEFAZOLIN [Concomitant]
     Active Substance: CEFAZOLIN
  4. AGGRASTAT [Suspect]
     Active Substance: TIROFIBAN HYDROCHLORIDE
     Indication: ANTIPLATELET THERAPY
     Dosage: CONTINUOUS INFUSION FROM 26-MAR 09:00 TO 27-MAR
     Route: 041
     Dates: start: 20180326, end: 20180327
  5. ASPIRIN. [Concomitant]
     Active Substance: ASPIRIN
     Indication: ANTIPLATELET THERAPY
     Dosage: DUAL ANTIPLATELET THERAPY WITH AGGRASTAT
     Dates: start: 20190317
  6. ASPIRIN. [Concomitant]
     Active Substance: ASPIRIN
     Dosage: 81 MG PO DAILY
     Route: 048
  7. FENTANYL. [Concomitant]
     Active Substance: FENTANYL
  8. PROTONIX [Concomitant]
     Active Substance: PANTOPRAZOLE SODIUM
  9. PROPOFOL. [Concomitant]
     Active Substance: PROPOFOL
  10. AGGRASTAT [Suspect]
     Active Substance: TIROFIBAN HYDROCHLORIDE
     Indication: ANTIPLATELET THERAPY
     Dosage: CONTINUOUS INFUSION FROM 22-MAR 01:00 TO 25-MAR 17:59
     Route: 041
     Dates: start: 20190322, end: 20190325
  11. ENOXAPARIN [Concomitant]
     Active Substance: ENOXAPARIN
     Dosage: 40 MG SC Q24H
     Route: 058

REACTIONS (1)
  - Thrombocytopenia [Recovering/Resolving]

NARRATIVE: CASE EVENT DATE: 20190327
